FAERS Safety Report 21099433 (Version 1)
Quarter: 2022Q3

REPORT INFORMATION
  Report Type: Spontaneous
  Country: CA (occurrence: CA)
  Receive Date: 20220719
  Receipt Date: 20220719
  Transmission Date: 20221027
  Serious: Yes (Other)
  Sender: FDA-Public Use
  Company Number: CA-PFIZER INC-202200966358

PATIENT
  Age: 51 Year
  Sex: Female

DRUGS (2)
  1. XELJANZ [Suspect]
     Active Substance: TOFACITINIB CITRATE
     Indication: Psoriatic arthropathy
     Dosage: 5 MG, 2X/DAY
     Route: 048
     Dates: start: 20190501
  2. ADVIL [Concomitant]
     Active Substance: IBUPROFEN
     Dosage: 1 DF

REACTIONS (2)
  - Salivary gland mass [Not Recovered/Not Resolved]
  - Arthralgia [Not Recovered/Not Resolved]
